FAERS Safety Report 5112490-X (Version None)
Quarter: 2006Q3

REPORT INFORMATION
  Report Type: 
  Country: None (occurrence: None)
  Receive Date: 20060731
  Receipt Date: 20060614
  Transmission Date: 20061208
  Serious: No
  Sender: FDA-Public Use
  Company Number: 2006PV015613

PATIENT
  Age: 72 Year
  Sex: Female
  Weight: 100.2449 kg

DRUGS (1)
  1. BYETTA [Suspect]
     Indication: DIABETES MELLITUS NON-INSULIN-DEPENDENT
     Dosage: 5 MCG; ID; SC
     Route: 058
     Dates: start: 20060614

REACTIONS (7)
  - ANOREXIA [None]
  - ASTHENIA [None]
  - BLOOD GLUCOSE INCREASED [None]
  - DIZZINESS [None]
  - FLUSHING [None]
  - NAUSEA [None]
  - WEIGHT DECREASED [None]
